FAERS Safety Report 23830667 (Version 1)
Quarter: 2024Q2

REPORT INFORMATION
  Report Type: Spontaneous
  Country: US (occurrence: US)
  Receive Date: 20240508
  Receipt Date: 20240508
  Transmission Date: 20240716
  Serious: No
  Sender: FDA-Public Use
  Company Number: US-SAREPTA THERAPEUTICS INC.-SRP2024-004492

PATIENT
  Age: 4 Year
  Sex: Male
  Weight: 22 kg

DRUGS (9)
  1. ELEVIDYS [Suspect]
     Active Substance: DELANDISTROGENE MOXEPARVOVEC-ROKL
     Indication: Duchenne muscular dystrophy
     Dosage: 220 MILLILITER, SINGLE
     Route: 042
     Dates: start: 20231108, end: 20231108
  2. ZOFRAN [Concomitant]
     Active Substance: ONDANSETRON HYDROCHLORIDE
     Indication: Nausea
     Dosage: 1 TABLET EVERY 8 HOURS AS NEEDED
     Route: 048
     Dates: start: 20231103
  3. ZOFRAN [Concomitant]
     Active Substance: ONDANSETRON HYDROCHLORIDE
     Indication: Vomiting
  4. PREDNISOLONE [Concomitant]
     Active Substance: PREDNISOLONE
     Indication: Product used for unknown indication
     Dosage: 12 MILLILITER, QD
     Route: 048
     Dates: start: 20231103, end: 20240131
  5. PREDNISOLONE [Concomitant]
     Active Substance: PREDNISOLONE
     Dosage: 5.4 MILLILITER, QD
     Route: 048
     Dates: start: 20240131
  6. CLONIDINE [Concomitant]
     Active Substance: CLONIDINE
     Indication: Sleep disorder
     Dosage: 0.1 MILLIGRAM
     Route: 065
     Dates: start: 20240131
  7. CLONIDINE [Concomitant]
     Active Substance: CLONIDINE
     Indication: Abnormal behaviour
  8. CLONIDINE [Concomitant]
     Active Substance: CLONIDINE
     Indication: Agitation
  9. CHOLECALCIFEROL [Concomitant]
     Active Substance: CHOLECALCIFEROL
     Indication: Product used for unknown indication
     Dosage: 2000 INTERNATIONAL UNIT, QD
     Route: 048
     Dates: start: 20240228

REACTIONS (3)
  - Ligament sprain [Recovered/Resolved]
  - Gait disturbance [Recovered/Resolved]
  - Contusion [Recovered/Resolved]

NARRATIVE: CASE EVENT DATE: 20240223
